FAERS Safety Report 8165456-X (Version None)
Quarter: 2012Q1

REPORT INFORMATION
  Report Type: 
  Country: None (occurrence: None)
  Receive Date: 20120223
  Receipt Date: 20120223
  Transmission Date: 20120608
  Serious: Yes (Other)
  Sender: FDA-Public Use
  Company Number: None

PATIENT
  Age: 48 Year
  Sex: Female
  Weight: 86.1834 kg

DRUGS (12)
  1. SEROQUEL [Concomitant]
  2. DIAZEPAM [Concomitant]
  3. TAMOXIFEN CITRATE [Concomitant]
  4. LITHIUM CARBONATE ER [Concomitant]
  5. TRAMADOL HCL [Concomitant]
  6. PRILOSEC [Concomitant]
  7. PROPRANOLOL [Concomitant]
  8. BISMUTH SUBSALICYLATE [Concomitant]
  9. ZOFRAN [Suspect]
     Indication: NAUSEA
     Dosage: 4 MG Q 8 HOURS P.O.; 8 MG ONCE P.O.
     Route: 048
     Dates: start: 20120121
  10. ZOFRAN [Suspect]
     Indication: WEIGHT DECREASED
     Dosage: 4 MG Q 8 HOURS P.O.; 8 MG ONCE P.O.
     Route: 048
     Dates: start: 20120121
  11. ZOFRAN [Suspect]
     Indication: NAUSEA
     Dosage: 4 MG Q 8 HOURS P.O.; 8 MG ONCE P.O.
     Route: 048
     Dates: start: 20120120, end: 20120121
  12. ZOFRAN [Suspect]
     Indication: WEIGHT DECREASED
     Dosage: 4 MG Q 8 HOURS P.O.; 8 MG ONCE P.O.
     Route: 048
     Dates: start: 20120120, end: 20120121

REACTIONS (6)
  - RESTLESSNESS [None]
  - DYSKINESIA [None]
  - DRUG INEFFECTIVE [None]
  - AGITATION [None]
  - SNEEZING [None]
  - MUSCLE SPASMS [None]
